FAERS Safety Report 9683319 (Version 2)
Quarter: 2013Q4

REPORT INFORMATION
  Report Type: Spontaneous
  Country: US (occurrence: US)
  Receive Date: 20131112
  Receipt Date: 20131112
  Transmission Date: 20140711
  Serious: Yes (Other)
  Sender: FDA-Public Use
  Company Number: US-BAXTER-2013BAX005618

PATIENT
  Age: 73 Year
  Sex: Male

DRUGS (3)
  1. DIANEAL PD2 [Suspect]
     Indication: PERITONEAL DIALYSIS
     Route: 033
  2. DIANEAL PD2 (ULTRABAG) [Suspect]
     Indication: PERITONEAL DIALYSIS
     Route: 033
     Dates: end: 20130201
  3. DIANEAL PD2 (ULTRABAG) [Suspect]
     Route: 033
     Dates: start: 20130206

REACTIONS (2)
  - Peritonitis [Recovering/Resolving]
  - Diarrhoea [Unknown]
